FAERS Safety Report 4847838-4 (Version None)
Quarter: 2005Q4

REPORT INFORMATION
  Report Type: 
  Country: None (occurrence: None)
  Receive Date: 20051207
  Receipt Date: 20050813
  Transmission Date: 20060501
  Serious: Yes (Hospitalization)
  Sender: FDA-Public Use
  Company Number: GB-ABBOTT-05P-167-0308358-01

PATIENT
  Sex: Male

DRUGS (6)
  1. RITONAVIR SOFT GELATIN CAPSULES [Suspect]
     Indication: HIV INFECTION
     Route: 048
     Dates: start: 20031104
  2. TIPRANAVIR [Concomitant]
     Indication: HIV INFECTION
     Dates: start: 20031104
  3. METRONIDAZOLE [Concomitant]
     Indication: BACTERIAL INFECTION
  4. CIPROFLOXACIN [Concomitant]
     Indication: BACTERIAL INFECTION
  5. MESALAMINE [Concomitant]
     Indication: GASTROINTESTINAL DISORDER
  6. MESALAMINE [Concomitant]
     Indication: LOCAL SWELLING

REACTIONS (5)
  - ASTHENIA [None]
  - DIARRHOEA [None]
  - MUCOUS STOOLS [None]
  - SIGMOIDITIS [None]
  - WEIGHT DECREASED [None]
